FAERS Safety Report 9976851 (Version 1)
Quarter: 2014Q1

REPORT INFORMATION
  Report Type: Report from Study
  Country: US (occurrence: US)
  Receive Date: 20140306
  Receipt Date: 20140306
  Transmission Date: 20141002
  Serious: No
  Sender: FDA-Public Use
  Company Number: US-ABBVIE-13P-163-1166266-00

PATIENT
  Age: 36 Year
  Sex: Female

DRUGS (4)
  1. HUMIRA [Suspect]
     Indication: COLITIS ULCERATIVE
     Dates: start: 20130808
  2. BENADRYL [Concomitant]
     Indication: HYPERSENSITIVITY
     Dosage: DAILY IN PM
  3. ALLEGRA [Concomitant]
     Indication: HYPERSENSITIVITY
     Dosage: DAILY IN AM
  4. MONODOX [Concomitant]
     Indication: ACNE
     Dosage: DAILY

REACTIONS (2)
  - Injection site bruising [Recovering/Resolving]
  - Injection site haemorrhage [Recovering/Resolving]
